FAERS Safety Report 6528883-X (Version None)
Quarter: 2010Q1

REPORT INFORMATION
  Report Type: 
  Country: None (occurrence: None)
  Receive Date: 20100106
  Receipt Date: 20091125
  Transmission Date: 20100710
  Serious: Yes (Hospitalization)
  Sender: FDA-Public Use
  Company Number: PHHY2009JP52106

PATIENT
  Age: 9 Year
  Sex: Male

DRUGS (2)
  1. TEGRETOL [Suspect]
     Indication: OPPOSITIONAL DEFIANT DISORDER
     Dosage: 200 MG DAILY
     Route: 048
     Dates: start: 20090901, end: 20091122
  2. RISPERDAL [Suspect]
     Dosage: 1 MG DAILY
     Route: 048
     Dates: start: 20090901, end: 20091122

REACTIONS (6)
  - BLOOD LACTATE DEHYDROGENASE INCREASED [None]
  - C-REACTIVE PROTEIN INCREASED [None]
  - DRUG ERUPTION [None]
  - ERYTHEMA MULTIFORME [None]
  - LIVER DISORDER [None]
  - PYREXIA [None]
